FAERS Safety Report 5569846-0 (Version None)
Quarter: 2007Q4

REPORT INFORMATION
  Report Type: 
  Country: None (occurrence: None)
  Receive Date: 20071217
  Receipt Date: 20071202
  Transmission Date: 20080405
  Serious: Yes (Hospitalization)
  Sender: FDA-Public Use
  Company Number: 2007S1012824

PATIENT
  Age: 64 Year
  Sex: Female

DRUGS (3)
  1. METFORMIN HCL [Suspect]
     Indication: TYPE 2 DIABETES MELLITUS
     Dosage: 500 MG;TWICE A DAY;
  2. IBUPROFEN [Concomitant]
  3. LISINOPRIL [Concomitant]

REACTIONS (2)
  - METABOLIC ACIDOSIS [None]
  - RENAL INJURY [None]
